FAERS Safety Report 5806036-8 (Version None)
Quarter: 2008Q3

REPORT INFORMATION
  Report Type: 
  Country: None (occurrence: None)
  Receive Date: 20080709
  Receipt Date: 20080709
  Transmission Date: 20090109
  Serious: No
  Sender: FDA-Public Use
  Company Number: None

PATIENT
  Age: 64 Year
  Sex: Male

DRUGS (2)
  1. METOPROLOL TARTRATE [Suspect]
     Indication: HYPERTENSION
     Dosage: 50 MG BID PO
     Route: 048
     Dates: start: 20080407, end: 20080527
  2. CLONIDINE [Suspect]
     Indication: HYPERTENSION
     Dosage: MG TID PO
     Route: 048
     Dates: start: 20021220, end: 20080527

REACTIONS (4)
  - BONE DISORDER [None]
  - HYPOGLYCAEMIA [None]
  - HYPOTENSION [None]
  - TREATMENT NONCOMPLIANCE [None]
